FAERS Safety Report 8451788-4 (Version None)
Quarter: 2012Q2

REPORT INFORMATION
  Report Type: 
  Country: None (occurrence: None)
  Receive Date: 20120620
  Receipt Date: 20120605
  Transmission Date: 20120825
  Serious: Yes (Hospitalization, Other)
  Sender: FDA-Public Use
  Company Number: PT-ROCHE-703398

PATIENT
  Age: 50 Year
  Sex: Female

DRUGS (15)
  1. PREDNISOLONE [Suspect]
     Dosage: FREQUENCY: EVERYDAY (QD)
  2. METHOTREXATE [Suspect]
     Indication: RHEUMATOID ARTHRITIS
     Dates: start: 19950901, end: 19970901
  3. RITUXIMAB [Suspect]
     Indication: RHEUMATOID ARTHRITIS
     Route: 042
  4. AZATHIOPRINE [Suspect]
     Indication: RHEUMATOID ARTHRITIS
     Dosage: FREQUENCY: EVERYDAY (QD)
     Dates: start: 19971201, end: 20040601
  5. METHOTREXATE [Suspect]
     Dates: start: 19961101, end: 19970101
  6. METHOTREXATE [Suspect]
  7. AZULFIDINE [Suspect]
     Indication: RHEUMATOID ARTHRITIS
     Dosage: FREQUENCY: EVERYDAY (QD)
  8. HYDROXYCHLOROQUINE SULFATE [Concomitant]
     Dates: start: 19961101
  9. HYDROXYCHLOROQUINE SULFATE [Concomitant]
     Dates: start: 19971201
  10. PREDNISOLONE [Suspect]
     Indication: RHEUMATOID ARTHRITIS
     Dosage: FREQUENCY: EVERYDAY (QD). DOSE REPORTED: 5 MG QD} 10 MG QD
  11. ALENDRONATE SODIUM [Suspect]
     Indication: RHEUMATOID ARTHRITIS
     Dates: start: 20030101
  12. ETANERCEPT [Suspect]
     Indication: RHEUMATOID ARTHRITIS
  13. RITUXIMAB [Suspect]
     Route: 042
  14. ADALIMUMAB [Suspect]
     Indication: RHEUMATOID ARTHRITIS
     Route: 058
  15. METHOTREXATE [Suspect]

REACTIONS (12)
  - STEATORRHOEA [None]
  - WEIGHT DECREASED [None]
  - BILIARY CIRRHOSIS PRIMARY [None]
  - GANGLIONEUROMA [None]
  - HEPATIC STEATOSIS [None]
  - MULTIPLE FRACTURES [None]
  - SJOGREN'S SYNDROME [None]
  - CHEST PAIN [None]
  - RIB FRACTURE [None]
  - WRIST FRACTURE [None]
  - PYREXIA [None]
  - CHOLESTASIS [None]
